FAERS Safety Report 11048777 (Version 1)
Quarter: 2015Q2

REPORT INFORMATION
  Report Type: Spontaneous
  Country: TR (occurrence: TR)
  Receive Date: 20150420
  Receipt Date: 20150420
  Transmission Date: 20150821
  Serious: Yes (Other)
  Sender: FDA-Public Use
  Company Number: TR-CIPLA LTD.-2015TR02988

PATIENT

DRUGS (2)
  1. BIPERIDENE [Suspect]
     Active Substance: BIPERIDEN
     Indication: SCHIZOPHRENIA
  2. RISPERIDONE. [Suspect]
     Active Substance: RISPERIDONE
     Indication: SCHIZOPHRENIA
     Dosage: 4 MG EVERY ALTERNATE DAY
     Route: 048

REACTIONS (1)
  - Liver function test abnormal [Recovered/Resolved]
